FAERS Safety Report 25556140 (Version 7)
Quarter: 2025Q4

REPORT INFORMATION
  Report Type: Spontaneous
  Country: US (occurrence: None)
  Receive Date: 20250715
  Receipt Date: 20251010
  Transmission Date: 20260118
  Serious: Yes (Other)
  Sender: ORGANON
  Company Number: US-ORGANON-O2507USA000968

PATIENT
  Sex: Female

DRUGS (2)
  1. FOLLISTIM AQ [Suspect]
     Active Substance: FOLLITROPIN
     Indication: In vitro fertilisation
     Dosage: UNK
  2. FOLLISTIM AQ [Suspect]
     Active Substance: FOLLITROPIN
     Dosage: UNK

REACTIONS (6)
  - Localised infection [Not Recovered/Not Resolved]
  - Needle issue [Unknown]
  - Device issue [Unknown]
  - Injury associated with device [Unknown]
  - Product contamination physical [Unknown]
  - Exposure to contaminated device [Unknown]

NARRATIVE: CASE EVENT DATE: 20250707
